FAERS Safety Report 10163052 (Version 2)
Quarter: 2014Q2

REPORT INFORMATION
  Report Type: Spontaneous
  Country: US (occurrence: US)
  Receive Date: 20140509
  Receipt Date: 20140509
  Transmission Date: 20141212
  Serious: Yes (Hospitalization, Other)
  Sender: FDA-Public Use
  Company Number: PHHY2014US041059

PATIENT
  Age: 15 Year
  Sex: Female

DRUGS (8)
  1. LIORESAL INTRATECAL [Suspect]
     Indication: MUSCLE SPASTICITY
     Dosage: 55.02 UG/ DAY
     Route: 037
     Dates: start: 20140220
  2. LIORESAL INTRATECAL [Suspect]
     Dosage: 63.2 UG/ DAY
     Route: 037
     Dates: start: 20140317
  3. LIORESAL INTRATECAL [Suspect]
     Dosage: 55.16 UG/ DAY
     Route: 037
     Dates: start: 20140325
  4. TENORMIN [Suspect]
     Dosage: UNK UKN, UNK
  5. KEPPRA [Suspect]
     Dosage: UNK UKN, UNK
  6. TOPAMAX [Suspect]
     Dosage: UNK UKN, UNK
  7. SINGULAIR [Suspect]
     Dosage: UNK UKN, UNK
  8. VITAMIN D [Suspect]
     Dosage: UNK UKN, UNK

REACTIONS (7)
  - Drug hypersensitivity [Recovering/Resolving]
  - Faecaloma [Recovering/Resolving]
  - Abdominal distension [Recovering/Resolving]
  - Somnolence [Recovering/Resolving]
  - Lethargy [Recovering/Resolving]
  - Constipation [Recovering/Resolving]
  - Overdose [Recovering/Resolving]
